FAERS Safety Report 9586086 (Version 2)
Quarter: 2013Q4

REPORT INFORMATION
  Report Type: Report from Study
  Country: CA (occurrence: CA)
  Receive Date: 20131003
  Receipt Date: 20131113
  Transmission Date: 20140711
  Serious: Yes (Hospitalization)
  Sender: FDA-Public Use
  Company Number: CA-JNJFOC-20130916578

PATIENT
  Age: 45 Year
  Sex: Male
  Weight: 79 kg

DRUGS (1)
  1. REMICADE [Suspect]
     Indication: CROHN^S DISEASE
     Dosage: FOR 52 WEEKS
     Route: 042
     Dates: start: 2006

REACTIONS (2)
  - Intestinal obstruction [Unknown]
  - Malaise [Unknown]
